FAERS Safety Report 23689019 (Version 2)
Quarter: 2024Q2

REPORT INFORMATION
  Report Type: Spontaneous
  Country: DE (occurrence: DE)
  Receive Date: 20240329
  Receipt Date: 20240510
  Transmission Date: 20240716
  Serious: Yes (Hospitalization, Other)
  Sender: FDA-Public Use
  Company Number: DE-BRISTOL-MYERS SQUIBB COMPANY-2023-084053

PATIENT
  Age: 60 Year
  Sex: Male
  Weight: 52 kg

DRUGS (17)
  1. FLUOROURACIL [Suspect]
     Active Substance: FLUOROURACIL
     Indication: Gastric cancer
     Dosage: 4189.000MG BIW
     Route: 042
     Dates: start: 20230417, end: 20230608
  2. DOCETAXEL [Suspect]
     Active Substance: DOCETAXEL\DOCETAXEL ANHYDROUS
     Indication: Gastric cancer
     Dosage: 81.000MG BIW
     Route: 042
     Dates: start: 20230417, end: 20230608
  3. OXALIPLATIN [Suspect]
     Active Substance: OXALIPLATIN
     Indication: Gastric cancer
     Dosage: 137.000MG BIW
     Route: 042
     Dates: start: 20230417, end: 20230608
  4. OPDIVO [Suspect]
     Active Substance: NIVOLUMAB
     Indication: Gastric cancer
     Dosage: 240.000MG BIW
     Route: 042
     Dates: start: 20230428, end: 20230608
  5. AMOXICILLIN\CLAVULANATE POTASSIUM [Concomitant]
     Active Substance: AMOXICILLIN\CLAVULANATE POTASSIUM
     Indication: Product used for unknown indication
     Dosage: 875.000MG
     Route: 048
     Dates: start: 20231004, end: 20231009
  6. Bepanthen [Concomitant]
     Indication: Product used for unknown indication
     Route: 062
     Dates: start: 20230526
  7. SULFAMETHOXAZOLE\TRIMETHOPRIM [Concomitant]
     Active Substance: SULFAMETHOXAZOLE\TRIMETHOPRIM
     Indication: Prophylaxis
     Dosage: 960.000MG
     Route: 048
     Dates: start: 20230905
  8. CHOLECALCIFEROL [Concomitant]
     Active Substance: CHOLECALCIFEROL
     Indication: Prophylaxis
     Dosage: DOSE:1000 IE
     Route: 048
     Dates: start: 20230905
  9. DEXAMETHASONE [Concomitant]
     Active Substance: DEXAMETHASONE
     Indication: Product used for unknown indication
     Route: 042
     Dates: end: 20230502
  10. Fresubin energy [Concomitant]
     Indication: Product used for unknown indication
     Dosage: QD
     Route: 048
     Dates: start: 20230323
  11. OLANZAPINE [Concomitant]
     Active Substance: OLANZAPINE
     Indication: Prophylaxis
     Dosage: 5.000MG
     Route: 048
     Dates: start: 20230526
  12. ONDANSETRON [Concomitant]
     Active Substance: ONDANSETRON
     Indication: Prophylaxis
     Dosage: 4.000MG
     Route: 042
     Dates: start: 20230503, end: 20230503
  13. ONDANSETRON [Concomitant]
     Active Substance: ONDANSETRON
     Dosage: 4.000MG
     Route: 048
     Dates: start: 20230516
  14. PALONOSETRON [Concomitant]
     Active Substance: PALONOSETRON
     Indication: Prophylaxis
     Route: 042
     Dates: end: 20230502
  15. PREDNISOLONE [Concomitant]
     Active Substance: PREDNISOLONE
     Indication: Product used for unknown indication
     Route: 065
  16. LEUCOVORIN [Concomitant]
     Active Substance: LEUCOVORIN\LEUCOVORIN CALCIUM
     Indication: Gastric cancer
     Dosage: 200.000MG/M2
     Route: 042
     Dates: start: 20230417
  17. DIMENHYDRINATE [Concomitant]
     Active Substance: DIMENHYDRINATE
     Indication: Product used for unknown indication
     Dosage: 62.000MG
     Route: 042
     Dates: start: 20230503, end: 20230503

REACTIONS (14)
  - COVID-19 [Recovered/Resolved]
  - Neutropenia [Unknown]
  - Immune-mediated hepatitis [Recovered/Resolved]
  - Polyneuropathy [Recovered/Resolved]
  - Asthenia [Unknown]
  - Nasal dryness [Unknown]
  - Anaemia [Unknown]
  - Productive cough [Unknown]
  - Fatigue [Recovered/Resolved]
  - Haematoma [Recovering/Resolving]
  - Pyrexia [Recovered/Resolved]
  - Liver function test increased [Unknown]
  - Diarrhoea [Recovered/Resolved]
  - Platelet count decreased [Recovered/Resolved]

NARRATIVE: CASE EVENT DATE: 20230429
